FAERS Safety Report 4369049-1 (Version None)
Quarter: 2004Q2

REPORT INFORMATION
  Report Type: 
  Country: None (occurrence: None)
  Receive Date: 20040527
  Receipt Date: 20040429
  Transmission Date: 20050107
  Serious: No
  Sender: FDA-Public Use
  Company Number: MP04-039

PATIENT
  Sex: Female

DRUGS (3)
  1. ORTHO-EST [Suspect]
  2. COZAAR [Concomitant]
  3. POTASSIUM SUPPLEMENTS [Concomitant]

REACTIONS (1)
  - CARCINOMA [None]
